FAERS Safety Report 6795488-5 (Version None)
Quarter: 2010Q2

REPORT INFORMATION
  Report Type: 
  Country: None (occurrence: None)
  Receive Date: 20100625
  Receipt Date: 20100614
  Transmission Date: 20101027
  Serious: Yes (Other)
  Sender: FDA-Public Use
  Company Number: PHHY2009DE20412

PATIENT
  Sex: Female
  Weight: 73 kg

DRUGS (1)
  1. LDT600 LDT+ [Suspect]
     Indication: HEPATITIS B
     Dosage: 600 MG/D DAILY
     Route: 048
     Dates: start: 20080424, end: 20090416

REACTIONS (5)
  - ALANINE AMINOTRANSFERASE INCREASED [None]
  - ASPARTATE AMINOTRANSFERASE INCREASED [None]
  - GAMMA-GLUTAMYLTRANSFERASE INCREASED [None]
  - GENERAL PHYSICAL HEALTH DETERIORATION [None]
  - HEPATITIS B DNA INCREASED [None]
